FAERS Safety Report 11426720 (Version 1)
Quarter: 2015Q3

REPORT INFORMATION
  Report Type: Spontaneous
  Country: US (occurrence: US)
  Receive Date: 20150821
  Receipt Date: 20150821
  Transmission Date: 20151125
  Serious: No
  Sender: FDA-Public Use
  Company Number: US-ELI_LILLY_AND_COMPANY-US201307008447

PATIENT
  Age: 80 Year
  Sex: Male
  Weight: 75.74 kg

DRUGS (1)
  1. INSULIN HUMAN [Suspect]
     Active Substance: INSULIN HUMAN
     Dosage: UNK
     Route: 058

REACTIONS (3)
  - Blood glucose increased [Unknown]
  - Wrong technique in product usage process [Not Recovered/Not Resolved]
  - Device battery issue [None]

NARRATIVE: CASE EVENT DATE: 20130719
